FAERS Safety Report 6641555-6 (Version None)
Quarter: 2010Q1

REPORT INFORMATION
  Report Type: 
  Country: None (occurrence: None)
  Receive Date: 20100317
  Receipt Date: 20100317
  Transmission Date: 20100710
  Serious: Yes (Other)
  Sender: FDA-Public Use
  Company Number: None

PATIENT
  Age: 22 Year
  Sex: Female
  Weight: 56.6 kg

DRUGS (11)
  1. CEFEPIME [Suspect]
     Indication: FEBRILE NEUTROPENIA
     Dosage: 1 GRAM EVERY 8 HOURS IV
     Route: 042
     Dates: start: 20100106
  2. ACYCLOVIR [Concomitant]
  3. CASPOFUNGIN [Concomitant]
  4. DIPHENHYDRINE [Concomitant]
  5. GLUTAMINE [Concomitant]
  6. LANSOPRAZOLE [Concomitant]
  7. M.V.I. [Concomitant]
  8. ONDANSETRON [Concomitant]
  9. TACROLIMUS [Concomitant]
  10. VITE [Concomitant]
  11. NIGOX [Concomitant]

REACTIONS (2)
  - INFECTION [None]
  - INFUSION RELATED REACTION [None]
